FAERS Safety Report 7974707-3 (Version None)
Quarter: 2011Q4

REPORT INFORMATION
  Report Type: 
  Country: None (occurrence: None)
  Receive Date: 20111213
  Receipt Date: 20111205
  Transmission Date: 20120403
  Serious: Yes (Death, Hospitalization)
  Sender: FDA-Public Use
  Company Number: US-ELI_LILLY_AND_COMPANY-US201107007404

PATIENT
  Age: 71 Year
  Sex: Female
  Weight: 101.6 kg

DRUGS (12)
  1. FLAXSEED OIL [Concomitant]
  2. FISH OIL [Concomitant]
  3. HIZAAR [Concomitant]
  4. VIVELLE [Concomitant]
     Dosage: 0.25 MG, UNK
  5. FORTEO [Suspect]
     Indication: OSTEOPOROSIS
     Dosage: UNK, UNKNOWN
     Route: 065
  6. INDAPAMIDE [Concomitant]
     Dosage: 2.5 MG, BID
  7. ALBUTEROL [Concomitant]
  8. ASCORBIC ACID [Concomitant]
  9. PREDNISONE TAB [Concomitant]
     Dosage: 10 MG, QD
  10. IMITREX [Concomitant]
     Dosage: UNK, PRN
  11. SYNTHROID [Concomitant]
     Dosage: 0.075 MG, UNK
  12. ESTROGENS [Concomitant]
     Route: 061

REACTIONS (2)
  - HOSPITALISATION [None]
  - DEATH [None]
